FAERS Safety Report 6296393-3 (Version None)
Quarter: 2009Q3

REPORT INFORMATION
  Report Type: 
  Country: None (occurrence: None)
  Receive Date: 20090804
  Receipt Date: 20090727
  Transmission Date: 20100115
  Serious: Yes (Other)
  Sender: FDA-Public Use
  Company Number: EMADSS2003002421

PATIENT
  Age: 67 Year
  Sex: Female

DRUGS (5)
  1. REMICADE [Suspect]
     Indication: RHEUMATOID ARTHRITIS
     Route: 041
     Dates: start: 20000329, end: 20030318
  2. METHOTREXATE [Concomitant]
  3. NONSTEROIDAL ANTI-INFLAMMATORY AGENT [Concomitant]
  4. CORTICOSTEROIDS [Concomitant]
  5. OMEPRAZOLE [Concomitant]

REACTIONS (2)
  - INTERVERTEBRAL DISCITIS [None]
  - TUBERCULOSIS [None]
